FAERS Safety Report 11085706 (Version 2)
Quarter: 2015Q2

REPORT INFORMATION
  Report Type: Spontaneous
  Country: US (occurrence: US)
  Receive Date: 20150503
  Receipt Date: 20150525
  Transmission Date: 20150821
  Serious: No
  Sender: FDA-Public Use
  Company Number: US-JNJFOC-20071105851

PATIENT
  Age: 81 Year
  Sex: Female
  Weight: 89.81 kg

DRUGS (1)
  1. ULTRAM ER [Suspect]
     Active Substance: TRAMADOL HYDROCHLORIDE
     Indication: ARTHRITIS
     Route: 048
     Dates: start: 20071101, end: 20071101

REACTIONS (3)
  - Insomnia [Recovered/Resolved]
  - Nervousness [Recovered/Resolved]
  - Euphoric mood [Recovered/Resolved]

NARRATIVE: CASE EVENT DATE: 20071101
